FAERS Safety Report 20089618 (Version 1)
Quarter: 2021Q4

REPORT INFORMATION
  Report Type: Spontaneous
  Country: US (occurrence: US)
  Receive Date: 20211119
  Receipt Date: 20211119
  Transmission Date: 20220303
  Serious: Yes (Hospitalization)
  Sender: FDA-Public Use
  Company Number: US-NOVOPROD-867884

PATIENT
  Age: 44 Year
  Sex: Female

DRUGS (1)
  1. WEGOVY [Suspect]
     Active Substance: SEMAGLUTIDE
     Indication: Decreased appetite
     Dosage: 0.25 MG, SINGLE
     Route: 058
     Dates: start: 20211026, end: 20211026

REACTIONS (7)
  - Loss of consciousness [Recovered/Resolved]
  - Blood potassium decreased [Recovered/Resolved]
  - Chest pain [Recovered/Resolved]
  - Dehydration [Recovered/Resolved]
  - Blood calcium decreased [Recovered/Resolved]
  - Blood glucose decreased [Recovered/Resolved]
  - Abdominal pain upper [Recovered/Resolved]

NARRATIVE: CASE EVENT DATE: 20211028
